FAERS Safety Report 23220809 (Version 3)
Quarter: 2024Q1

REPORT INFORMATION
  Report Type: Spontaneous
  Country: US (occurrence: US)
  Receive Date: 20231123
  Receipt Date: 20240319
  Transmission Date: 20240410
  Serious: No
  Sender: FDA-Public Use
  Company Number: US-SA-SAC20231115001390

PATIENT
  Age: 13 Year
  Sex: Female

DRUGS (4)
  1. DUPIXENT [Suspect]
     Active Substance: DUPILUMAB
     Indication: Dermatitis atopic
     Dosage: 200 MG, QOW
     Route: 058
     Dates: start: 202310
  2. DUPIXENT [Suspect]
     Active Substance: DUPILUMAB
     Indication: Eczema
  3. ZYRTEC [Concomitant]
     Active Substance: CETIRIZINE HYDROCHLORIDE
     Dosage: UNK
  4. TRIAMCINOLONE [Concomitant]
     Active Substance: TRIAMCINOLONE
     Dosage: UNK

REACTIONS (11)
  - Influenza [Not Recovered/Not Resolved]
  - Streptococcal infection [Not Recovered/Not Resolved]
  - Pyrexia [Not Recovered/Not Resolved]
  - Cough [Not Recovered/Not Resolved]
  - Rash pruritic [Recovering/Resolving]
  - Nasal congestion [Unknown]
  - Oropharyngeal pain [Not Recovered/Not Resolved]
  - Drug ineffective [Unknown]
  - Accidental exposure to product [Unknown]
  - Exposure via skin contact [Unknown]
  - Incorrect dose administered [Unknown]

NARRATIVE: CASE EVENT DATE: 20230101
